FAERS Safety Report 9645544 (Version 1)
Quarter: 2013Q4

REPORT INFORMATION
  Report Type: Spontaneous
  Country: AT (occurrence: AT)
  Receive Date: 20131025
  Receipt Date: 20131025
  Transmission Date: 20140711
  Serious: Yes (Death)
  Sender: FDA-Public Use
  Company Number: AT-ACTELION-A-CH2013-90112

PATIENT
  Age: 69 Year
  Sex: Male

DRUGS (1)
  1. TRACLEER [Suspect]
     Indication: PULMONARY HYPERTENSION
     Dosage: 125 MG, UNK
     Route: 048

REACTIONS (3)
  - Right ventricular failure [Fatal]
  - Renal failure [Fatal]
  - Ascites [Unknown]
